FAERS Safety Report 8132116-0 (Version None)
Quarter: 2012Q1

REPORT INFORMATION
  Report Type: 
  Country: None (occurrence: None)
  Receive Date: 20120213
  Receipt Date: 20120207
  Transmission Date: 20120608
  Serious: Yes (Other)
  Sender: FDA-Public Use
  Company Number: AU-PFIZER INC-2012032333

PATIENT
  Sex: Female

DRUGS (9)
  1. LEVOTHYROXINE SODIUM [Concomitant]
     Dosage: 100 UG, UNK
  2. SIMVASTATIN [Concomitant]
     Dosage: 20 MG, UNK
  3. GLIMEPIRIDE [Concomitant]
     Dosage: 4 MG, UNK
  4. PANTOPRAZOLE [Concomitant]
     Dosage: 20 MG, UNK
  5. PERINDOPRIL [Concomitant]
     Dosage: 20 MG, UNK
  6. PLAVIX [Concomitant]
     Dosage: 75 MG, UNK
  7. LASIX [Concomitant]
  8. REVATIO [Suspect]
     Indication: PULMONARY HYPERTENSION
     Dosage: 20 MG, 3X/DAY
     Route: 048
  9. INSULIN [Concomitant]
     Dosage: 30/70

REACTIONS (1)
  - DIABETIC RETINOPATHY [None]
